FAERS Safety Report 9992568 (Version 1)
Quarter: 2014Q1

REPORT INFORMATION
  Report Type: Spontaneous
  Country: AT (occurrence: AT)
  Receive Date: 20140310
  Receipt Date: 20140310
  Transmission Date: 20141002
  Serious: Yes (Other)
  Sender: FDA-Public Use
  Company Number: PHHY2014AT027874

PATIENT
  Age: 11 Year
  Sex: Male

DRUGS (9)
  1. TOBI PODHALER [Suspect]
     Indication: PSEUDOMONAS INFECTION
     Dosage: UNK
     Route: 055
  2. ANTIBIOTICS [Concomitant]
     Dosage: UNK
  3. PULMOZYME [Concomitant]
     Dosage: UNK
  4. SULTANOL [Concomitant]
     Dosage: UNK
  5. KREON 25000 [Concomitant]
     Dosage: UNK UKN, UNK
  6. URSOFALK [Concomitant]
     Dosage: UNK
  7. LOSAC [Concomitant]
     Dosage: UNK
  8. AQUADEKS [Concomitant]
     Dosage: UNK
  9. YOMOGI [Concomitant]
     Dosage: UNK UKN, UNK

REACTIONS (4)
  - Hypersensitivity [Unknown]
  - Rash generalised [Unknown]
  - Pruritus [Unknown]
  - Scratch [Unknown]
